FAERS Safety Report 9581034 (Version 1)
Quarter: 2013Q3

REPORT INFORMATION
  Report Type: Spontaneous
  Country: US (occurrence: None)
  Receive Date: 20130916
  Receipt Date: 20130916
  Transmission Date: 20140515
  Serious: Yes (Other)
  Sender: FDA-Public Use
  Company Number: JPI-P-026895

PATIENT
  Age: 37 Year
  Sex: Female
  Weight: 68.04 kg

DRUGS (9)
  1. XYREM [Suspect]
     Indication: CATAPLEXY
     Route: 048
     Dates: start: 20121123, end: 20121124
  2. XYREM [Suspect]
     Indication: FIBROMYALGIA
     Route: 048
     Dates: start: 20121123, end: 20121124
  3. ROPINIROLE [Concomitant]
  4. ABILIFY [Concomitant]
  5. VENLAFAXINE HYDROCHLORIDE [Concomitant]
  6. MONTELUKAST SODIUM [Concomitant]
  7. LUBIPROSTONE [Concomitant]
  8. VITAMIN D [Concomitant]
  9. CETIRIZINE [Concomitant]

REACTIONS (2)
  - Suicidal ideation [None]
  - Depression [None]
